FAERS Safety Report 7516456-1 (Version None)
Quarter: 2011Q2

REPORT INFORMATION
  Report Type: 
  Country: None (occurrence: None)
  Receive Date: 20110601
  Receipt Date: 20110517
  Transmission Date: 20111010
  Serious: Yes (Hospitalization)
  Sender: FDA-Public Use
  Company Number: A0781132A

PATIENT
  Age: 53 Year
  Sex: Female
  Weight: 97.7 kg

DRUGS (5)
  1. HYDROCHLOROTHIAZIDE [Concomitant]
  2. GLUCOTROL XL [Concomitant]
  3. AVANDIA [Suspect]
     Dosage: 8MG PER DAY
     Route: 048
     Dates: start: 20020601, end: 20070701
  4. PEPCID [Concomitant]
  5. ZOCOR [Concomitant]

REACTIONS (8)
  - CARDIAC FAILURE CONGESTIVE [None]
  - CARDIAC DISORDER [None]
  - MITRAL VALVE INCOMPETENCE [None]
  - MYOCARDIAL INFARCTION [None]
  - SEPTIC SHOCK [None]
  - PNEUMONITIS [None]
  - COGNITIVE DISORDER [None]
  - CEREBROVASCULAR ACCIDENT [None]
